FAERS Safety Report 5088564-9 (Version None)
Quarter: 2006Q3

REPORT INFORMATION
  Report Type: 
  Country: None (occurrence: None)
  Receive Date: 20060801
  Receipt Date: 20060517
  Transmission Date: 20061208
  Serious: Yes (Life-Threatening, Hospitalization)
  Sender: FDA-Public Use
  Company Number: OMPQ-PR-0605S-0291

PATIENT
  Age: 63 Year
  Sex: Male
  Weight: 99.7913 kg

DRUGS (8)
  1. OMNIPAQUE 240 [Suspect]
     Indication: DRUG USE FOR UNKNOWN INDICATION
     Dosage: 150 ML, SINGLE DOSE, I.V.
     Route: 042
     Dates: start: 20060418, end: 20060418
  2. LIPITOR [Concomitant]
  3. SERETIDE MITE (ADVAIR) [Concomitant]
  4. PANTOPRAZOLE (PROTONIX) [Concomitant]
  5. FERROUS SULFATE (IRON SULFATE) [Concomitant]
  6. DILTIAZEM HYDROCHLORIDE (DILITZEM ER) [Concomitant]
  7. AMIODARONE HCL [Concomitant]
  8. WARFARIN SODIUM [Concomitant]

REACTIONS (1)
  - ANAPHYLACTOID SHOCK [None]
